FAERS Safety Report 24690888 (Version 2)
Quarter: 2025Q2

REPORT INFORMATION
  Report Type: Spontaneous
  Country: US (occurrence: US)
  Receive Date: 20241203
  Receipt Date: 20250604
  Transmission Date: 20250717
  Serious: No
  Sender: NOVEN
  Company Number: US-NOVEN PHARMACEUTICALS, INC.-2024-NOV-US001395

PATIENT
  Sex: Female

DRUGS (3)
  1. ESTRADIOL [Suspect]
     Active Substance: ESTRADIOL
     Indication: Palpitations
     Dosage: 0.1 MG, 2/WEEK (TUESDAYS AND FRIDAYS)
     Route: 062
     Dates: start: 202408, end: 202408
  2. ESTRADIOL [Suspect]
     Active Substance: ESTRADIOL
     Indication: Atrial fibrillation
  3. ESTRADIOL [Suspect]
     Active Substance: ESTRADIOL
     Indication: Off label use

REACTIONS (10)
  - Application site pruritus [Recovered/Resolved]
  - Arthralgia [Recovered/Resolved]
  - Therapeutic response unexpected [Recovered/Resolved]
  - Adhesive tape use [Recovered/Resolved]
  - Wrong technique in product usage process [Recovered/Resolved]
  - Product adhesion issue [Recovered/Resolved]
  - Product residue present [Recovered/Resolved]
  - Product colour issue [Recovered/Resolved]
  - Device issue [Recovered/Resolved]
  - Off label use [Recovered/Resolved]

NARRATIVE: CASE EVENT DATE: 20240801
